FAERS Safety Report 16191211 (Version 2)
Quarter: 2019Q2

REPORT INFORMATION
  Report Type: Spontaneous
  Country: JP (occurrence: JP)
  Receive Date: 20190412
  Receipt Date: 20190425
  Transmission Date: 20190711
  Serious: No
  Sender: FDA-Public Use
  Company Number: JP-ELI_LILLY_AND_COMPANY-JP201904002734

PATIENT
  Age: 43 Year
  Sex: Female

DRUGS (2)
  1. HUMATROPE [Suspect]
     Active Substance: SOMATROPIN
     Indication: GROWTH HORMONE DEFICIENCY
     Dosage: 0.2 MG, DAILY
     Route: 058
     Dates: start: 201901
  2. HUMATROPE [Suspect]
     Active Substance: SOMATROPIN
     Dosage: 0.05 MG, DAILY
     Route: 058

REACTIONS (1)
  - Headache [Recovered/Resolved]
